FAERS Safety Report 18561801 (Version 1)
Quarter: 2020Q4

REPORT INFORMATION
  Report Type: Spontaneous
  Country: US (occurrence: US)
  Receive Date: 20201130
  Receipt Date: 20201130
  Transmission Date: 20210114
  Serious: Yes (Other)
  Sender: FDA-Public Use
  Company Number: NVSC2020US315898

PATIENT
  Age: 70 Year
  Sex: Male

DRUGS (1)
  1. ITRACONAZOLE. [Suspect]
     Active Substance: ITRACONAZOLE
     Indication: DISSEMINATED BLASTOMYCOSIS
     Dosage: 200 MG, BID
     Route: 048

REACTIONS (4)
  - Product use in unapproved indication [Unknown]
  - Cardiotoxicity [Recovering/Resolving]
  - Oedema [Recovering/Resolving]
  - Cardiac failure [Recovering/Resolving]
